FAERS Safety Report 6893196-3 (Version None)
Quarter: 2010Q3

REPORT INFORMATION
  Report Type: 
  Country: None (occurrence: None)
  Receive Date: 20100731
  Receipt Date: 20090625
  Transmission Date: 20110219
  Serious: No
  Sender: FDA-Public Use
  Company Number: US-PFIZER INC-2009233269

PATIENT
  Sex: Male
  Weight: 79.365 kg

DRUGS (3)
  1. GABAPENTIN [Suspect]
     Indication: DIABETIC NEUROPATHY
     Dosage: 300 MG, 1X/DAY
     Dates: start: 20090612
  2. CRESTOR [Concomitant]
     Dosage: UNK
  3. VALSARTAN [Concomitant]
     Dosage: UNK

REACTIONS (1)
  - BLOOD CHOLESTEROL INCREASED [None]
